FAERS Safety Report 9117081 (Version 1)
Quarter: 2013Q1

REPORT INFORMATION
  Report Type: Spontaneous
  Country: US (occurrence: US)
  Receive Date: 20130225
  Receipt Date: 20130225
  Transmission Date: 20140127
  Serious: No
  Sender: FDA-Public Use
  Company Number: US-009507513-1302USA010955

PATIENT
  Sex: Female
  Weight: 57.5 kg

DRUGS (1)
  1. NEXPLANON [Suspect]
     Dosage: 1 ROD, LEFT ARM
     Route: 059

REACTIONS (1)
  - Rotator cuff syndrome [Not Recovered/Not Resolved]
